FAERS Safety Report 4741676-9 (Version None)
Quarter: 2005Q3

REPORT INFORMATION
  Report Type: 
  Country: None (occurrence: None)
  Receive Date: 20050808
  Receipt Date: 20050722
  Transmission Date: 20060218
  Serious: Yes (Hospitalization, Other)
  Sender: FDA-Public Use
  Company Number: 19580

PATIENT
  Age: 67 Year
  Sex: Male
  Weight: 77 kg

DRUGS (1)
  1. METHOTREXATE [Suspect]
     Indication: TRANSITIONAL CELL CARCINOMA
     Dosage: 59 MG/
     Dates: start: 20020829

REACTIONS (1)
  - STOMATITIS [None]
